FAERS Safety Report 6855008-3 (Version None)
Quarter: 2010Q3

REPORT INFORMATION
  Report Type: 
  Country: None (occurrence: None)
  Receive Date: 20100717
  Receipt Date: 20080507
  Transmission Date: 20110219
  Serious: No
  Sender: FDA-Public Use
  Company Number: US-PFIZER INC-2008004744

PATIENT
  Sex: Female
  Weight: 66.7 kg

DRUGS (3)
  1. CHANTIX [Suspect]
     Indication: SMOKING CESSATION THERAPY
     Route: 048
     Dates: start: 20080101, end: 20080301
  2. FLEXERIL [Concomitant]
  3. MOTRIN [Concomitant]

REACTIONS (3)
  - ANXIETY [None]
  - EMOTIONAL DISORDER [None]
  - HYPOAESTHESIA [None]
